FAERS Safety Report 4990416-7 (Version None)
Quarter: 2006Q1

REPORT INFORMATION
  Report Type: 
  Country: None (occurrence: None)
  Receive Date: 20060315
  Receipt Date: 20050413
  Transmission Date: 20060701
  Serious: Yes (Other)
  Sender: FDA-Public Use
  Company Number: USA050393262

PATIENT
  Sex: Female

DRUGS (8)
  1. GEMZAR [Suspect]
     Indication: BREAST CANCER METASTATIC
     Dosage: 1200 MG
     Dates: start: 20031016, end: 20040610
  2. VITAMIN B12 [Concomitant]
  3. PROCRIT [Concomitant]
  4. NEURONTIN [Concomitant]
  5. KLONOPIN [Concomitant]
  6. EFFEXOR [Concomitant]
  7. AMARYL [Concomitant]
  8. HYDROCODONE BITARTRATE [Concomitant]

REACTIONS (3)
  - CELLULITIS [None]
  - DERMATITIS [None]
  - MALIGNANT NEOPLASM PROGRESSION [None]
